FAERS Safety Report 5600294-0 (Version None)
Quarter: 2007Q4

REPORT INFORMATION
  Report Type: 
  Country: None (occurrence: None)
  Receive Date: 20071226
  Receipt Date: 20061214
  Transmission Date: 20080405
  Serious: Yes (Disabling)
  Sender: FDA-Public Use
  Company Number: 232868

PATIENT
  Age: 56 Year
  Sex: Female

DRUGS (2)
  1. RAPTIVA [Suspect]
     Indication: RASH
     Dosage: 90 MG, 1/WEEK, SUBCUTANEOUS
     Route: 058
     Dates: start: 20060201
  2. ZOLOFT [Concomitant]

REACTIONS (2)
  - OEDEMA PERIPHERAL [None]
  - PAIN IN EXTREMITY [None]
